FAERS Safety Report 25810157 (Version 1)
Quarter: 2025Q3

REPORT INFORMATION
  Report Type: Report from Study
  Country: US (occurrence: US)
  Receive Date: 20250917
  Receipt Date: 20250917
  Transmission Date: 20251020
  Serious: Yes (Other)
  Sender: ALEXION PHARMACEUTICALS
  Company Number: US-AstraZeneca-CH-00949907A

PATIENT
  Age: 62 Year
  Sex: Male
  Weight: 118 kg

DRUGS (19)
  1. CAPIVASERTIB [Suspect]
     Active Substance: CAPIVASERTIB
     Indication: Breast cancer male
     Dosage: 320 MILLIGRAM, BID
     Dates: start: 20250516
  2. ACTOS [Concomitant]
     Active Substance: PIOGLITAZONE HYDROCHLORIDE
     Route: 065
  3. ALEVE [Concomitant]
     Active Substance: NAPROXEN SODIUM
     Route: 065
  4. AMBIEN [Concomitant]
     Active Substance: ZOLPIDEM TARTRATE
     Route: 065
  5. ELIQUIS [Concomitant]
     Active Substance: APIXABAN
     Route: 065
  6. EPIPEN [Concomitant]
     Active Substance: EPINEPHRINE
     Route: 065
  7. FASLODEX [Concomitant]
     Active Substance: FULVESTRANT
     Route: 065
  8. LEXAPRO [Concomitant]
     Active Substance: ESCITALOPRAM OXALATE
     Route: 065
  9. LISINOPRIL [Concomitant]
     Active Substance: LISINOPRIL
     Route: 065
  10. METFORMIN HYDROCHLORIDE [Concomitant]
     Active Substance: METFORMIN HYDROCHLORIDE
     Route: 065
  11. NOVOLOG MIX 70/30 [Concomitant]
     Active Substance: INSULIN ASPART
     Route: 065
  12. PRAVASTATIN SODIUM [Concomitant]
     Active Substance: PRAVASTATIN SODIUM
     Route: 065
  13. PREDNISONE [Concomitant]
     Active Substance: PREDNISONE
     Route: 065
  14. TRESIBA [Concomitant]
     Active Substance: INSULIN DEGLUDEC
     Route: 065
  15. VITAMIN D [Concomitant]
     Active Substance: VITAMIN D NOS
     Route: 065
  16. XGEVA [Concomitant]
     Active Substance: DENOSUMAB
     Route: 065
  17. AMOXICILLIN\CLAVULANATE POTASSIUM [Concomitant]
     Active Substance: AMOXICILLIN\CLAVULANATE POTASSIUM
     Route: 065
  18. KETOCONAZOLE [Concomitant]
     Active Substance: KETOCONAZOLE
     Route: 065
  19. MOUNJARO [Concomitant]
     Active Substance: TIRZEPATIDE
     Route: 065

REACTIONS (1)
  - Pulmonary embolism [Recovering/Resolving]

NARRATIVE: CASE EVENT DATE: 20250516
